FAERS Safety Report 23153316 (Version 1)
Quarter: 2023Q4

REPORT INFORMATION
  Report Type: Spontaneous
  Country: US (occurrence: None)
  Receive Date: 20231106
  Receipt Date: 20231106
  Transmission Date: 20240110
  Serious: No
  Sender: FDA-Public Use
  Company Number: None

PATIENT
  Sex: Female

DRUGS (1)
  1. CABENUVA [Suspect]
     Active Substance: CABOTEGRAVIR\RILPIVIRINE
     Indication: HIV infection
     Dosage: 6 ML MILLILITRE (S) EVERY OTHER MONTH INTRAMUSCULAR?
     Route: 030
     Dates: start: 20230606

REACTIONS (5)
  - Eye pruritus [None]
  - Pain in extremity [None]
  - Neuropathy peripheral [None]
  - Visual impairment [None]
  - Dysuria [None]
